FAERS Safety Report 21505614 (Version 1)
Quarter: 2022Q4

REPORT INFORMATION
  Report Type: Spontaneous
  Country: US (occurrence: US)
  Receive Date: 20221026
  Receipt Date: 20221026
  Transmission Date: 20230113
  Serious: No
  Sender: FDA-Public Use
  Company Number: US-Melinta Therapeutics, LLC-US-MLNT-22-00093

PATIENT

DRUGS (1)
  1. VABOMERE [Suspect]
     Active Substance: MEROPENEM\VABORBACTAM
     Indication: Urinary tract infection
     Dosage: A PHYSICIAN HAS DECIDED ON A 1GM IVPB Q12H FOR HIS PATIENT WITH A RESISTANT UTI
     Route: 041
     Dates: start: 20220616

REACTIONS (1)
  - Vascular access site complication [Unknown]

NARRATIVE: CASE EVENT DATE: 20220616
